FAERS Safety Report 14547530 (Version 2)
Quarter: 2018Q1

REPORT INFORMATION
  Report Type: Spontaneous
  Country: DE (occurrence: DE)
  Receive Date: 20180219
  Receipt Date: 20180226
  Transmission Date: 20180509
  Serious: No
  Sender: FDA-Public Use
  Company Number: DE-BAYER-2018-026242

PATIENT
  Age: 58 Year
  Sex: Female
  Weight: 85 kg

DRUGS (1)
  1. MOXIFLOXACIN ORAL [Suspect]
     Active Substance: MOXIFLOXACIN
     Indication: BRONCHITIS
     Dosage: 1 DF, QD
     Route: 048

REACTIONS (28)
  - Dyspnoea [Unknown]
  - Gait disturbance [Unknown]
  - Dyspnoea [Not Recovered/Not Resolved]
  - Diarrhoea [Unknown]
  - Nausea [Unknown]
  - Haemorrhoids thrombosed [Unknown]
  - Palpitations [Unknown]
  - Arthralgia [Unknown]
  - Myalgia [Unknown]
  - Tendon pain [Not Recovered/Not Resolved]
  - Diarrhoea [Unknown]
  - Anxiety [Unknown]
  - Dizziness [Not Recovered/Not Resolved]
  - Vomiting [Unknown]
  - Muscle spasms [Unknown]
  - Tendon discomfort [Not Recovered/Not Resolved]
  - Functional gastrointestinal disorder [Unknown]
  - Vomiting [Unknown]
  - Gastrointestinal pain [Unknown]
  - Depression [Not Recovered/Not Resolved]
  - Chest pain [Not Recovered/Not Resolved]
  - Tendon pain [Unknown]
  - Panic reaction [Not Recovered/Not Resolved]
  - Oropharyngitis fungal [Unknown]
  - Palpitations [Not Recovered/Not Resolved]
  - Myalgia [Unknown]
  - Dizziness [Unknown]
  - Anxiety [Not Recovered/Not Resolved]

NARRATIVE: CASE EVENT DATE: 201801
